FAERS Safety Report 6941660-0 (Version None)
Quarter: 2010Q3

REPORT INFORMATION
  Report Type: 
  Country: None (occurrence: None)
  Receive Date: 20100825
  Receipt Date: 20100816
  Transmission Date: 20110219
  Serious: Yes (Hospitalization)
  Sender: FDA-Public Use
  Company Number: ZA-JNJFOC-20100805513

PATIENT
  Sex: Female

DRUGS (4)
  1. REVELLEX [Suspect]
     Indication: RHEUMATOID ARTHRITIS
     Route: 042
  2. REVELLEX [Suspect]
     Route: 042
  3. REVELLEX [Suspect]
     Route: 042
  4. METHOTREXATE [Concomitant]
     Route: 048

REACTIONS (1)
  - APPENDICITIS PERFORATED [None]
